FAERS Safety Report 4533362-5 (Version None)
Quarter: 2004Q4

REPORT INFORMATION
  Report Type: 
  Country: None (occurrence: None)
  Receive Date: 20041220
  Receipt Date: 20041220
  Transmission Date: 20050328
  Serious: Yes (Death)
  Sender: FDA-Public Use
  Company Number: None

PATIENT
  Age: 48 Year
  Sex: Male
  Weight: 101.6057 kg

DRUGS (2)
  1. TOPOTECAN [Suspect]
     Indication: GLIOBLASTOMA MULTIFORME
     Dosage: 0.85MG QD IVCI
     Route: 042
     Dates: start: 20040830, end: 20041208
  2. THALIDOMIDE [Suspect]
     Dosage: 400 MG QD PO
     Route: 048
     Dates: start: 20040630, end: 20041208

REACTIONS (2)
  - PNEUMOCYSTIS CARINII PNEUMONIA [None]
  - RESPIRATORY FAILURE [None]
